FAERS Safety Report 15900515 (Version 1)
Quarter: 2019Q1

REPORT INFORMATION
  Report Type: Spontaneous
  Country: CN (occurrence: CN)
  Receive Date: 20190201
  Receipt Date: 20190201
  Transmission Date: 20190417
  Serious: Yes (Life-Threatening)
  Sender: FDA-Public Use
  Company Number: CN-PFIZER INC-2019038548

PATIENT
  Age: 76 Year
  Sex: Male
  Weight: 58 kg

DRUGS (7)
  1. FRAGMIN [Suspect]
     Active Substance: DALTEPARIN SODIUM
     Indication: ANTICOAGULANT THERAPY
     Dosage: 5000 IU, 1X/DAY
     Route: 058
     Dates: start: 20181217, end: 20181217
  2. BRILINTA [Suspect]
     Active Substance: TICAGRELOR
     Indication: PLATELET DISORDER
     Dosage: 180 MG, 2X/DAY
     Route: 048
     Dates: start: 20181217, end: 20181217
  3. IOVERSOL [Concomitant]
     Active Substance: IOVERSOL
     Indication: X-RAY
     Dosage: 100 ML, 1X/DAY
     Dates: start: 20181217, end: 20181217
  4. KE DING [Concomitant]
     Indication: DYSLIPIDAEMIA
     Dosage: 20 MG, 2X/DAY
     Route: 048
     Dates: start: 20181217, end: 20181217
  5. ACETYLSALICYLIC ACID ENTERIC COATED [Suspect]
     Active Substance: ASPIRIN
     Indication: PLATELET DISORDER
     Dosage: 300 MG, 1X/DAY
     Route: 048
     Dates: start: 20181217, end: 20181217
  6. XIN WEI NING [Suspect]
     Active Substance: TIROFIBAN HYDROCHLORIDE
     Indication: COAGULOPATHY
     Dosage: 1750 UG, 1X/DAY
     Route: 041
     Dates: start: 20181217, end: 20181217
  7. NITROGLYCERIN. [Concomitant]
     Active Substance: NITROGLYCERIN
     Indication: HYPERTENSION
     Dosage: 30 MG, 1X/DAY
     Route: 041
     Dates: start: 20181217, end: 20181217

REACTIONS (1)
  - Platelet count decreased [Recovering/Resolving]

NARRATIVE: CASE EVENT DATE: 20181217
